FAERS Safety Report 6379296-5 (Version None)
Quarter: 2009Q3

REPORT INFORMATION
  Report Type: 
  Country: None (occurrence: None)
  Receive Date: 20090923
  Receipt Date: 20090923
  Transmission Date: 20100115
  Serious: Yes (Life-Threatening)
  Sender: FDA-Public Use
  Company Number: None

PATIENT
  Age: 63 Year
  Sex: Male
  Weight: 82 kg

DRUGS (7)
  1. HEPARIN [Suspect]
     Indication: MYOCARDIAL ISCHAEMIA
     Dosage: 1000 - 1200 U/HR IV
     Route: 042
     Dates: start: 20090520, end: 20090521
  2. ASPIRIN [Suspect]
     Indication: MYOCARDIAL ISCHAEMIA
     Dosage: 300 MG PR QD
     Dates: start: 20090520, end: 20090521
  3. HYDRALAZINE [Concomitant]
  4. INSULIN [Concomitant]
  5. METOPROLOL [Concomitant]
  6. RANITIDINE [Concomitant]
  7. AMIODARONE HCL [Concomitant]

REACTIONS (3)
  - GASTRIC ULCER [None]
  - GASTROINTESTINAL HAEMORRHAGE [None]
  - OESOPHAGITIS [None]
